FAERS Safety Report 10280706 (Version 2)
Quarter: 2014Q3

REPORT INFORMATION
  Report Type: Spontaneous
  Country: IT (occurrence: None)
  Receive Date: 20140702
  Receipt Date: 20140723
  Transmission Date: 20150326
  Serious: Yes (Hospitalization)
  Sender: FDA-Public Use
  Company Number: FK201402515

PATIENT
  Age: 62 Year
  Sex: Male
  Weight: 79 kg

DRUGS (3)
  1. FLUOROURACIL (FLUOROURACIL) [Concomitant]
     Active Substance: FLUOROURACIL
  2. GEMITABINE (GEMCITABINE) [Concomitant]
  3. OXALIPLATIN (MANUFACTURER UNKNOWN) (OXALIPLATIN) (OXALIPLATIN) [Suspect]
     Active Substance: OXALIPLATIN
     Indication: PRODUCT USED FOR UNKNOWN INDICATION
     Dosage: TOTAL
     Route: 042
     Dates: start: 20140213, end: 20140213

REACTIONS (8)
  - Hyperpyrexia [None]
  - Intravascular haemolysis [None]
  - Haemoglobin decreased [None]
  - Chills [None]
  - Hypotension [None]
  - Renal failure acute [None]
  - Blood bilirubin increased [None]
  - Gamma-glutamyltransferase increased [None]

NARRATIVE: CASE EVENT DATE: 20140213
